FAERS Safety Report 5683095-7 (Version None)
Quarter: 2008Q1

REPORT INFORMATION
  Report Type: 
  Country: None (occurrence: None)
  Receive Date: 20080327
  Receipt Date: 20080318
  Transmission Date: 20080703
  Serious: Yes (Life-Threatening)
  Sender: FDA-Public Use
  Company Number: GB-ELI_LILLY_AND_COMPANY-GB200708005958

PATIENT
  Sex: Female
  Weight: 110 kg

DRUGS (1)
  1. XIGRIS [Suspect]
     Dosage: UNK, UNKNOWN
     Route: 042
     Dates: start: 20070823, end: 20070824

REACTIONS (2)
  - ACUTE MYOCARDIAL INFARCTION [None]
  - ELECTROMECHANICAL DISSOCIATION [None]
